FAERS Safety Report 18365547 (Version 1)
Quarter: 2020Q4

REPORT INFORMATION
  Report Type: Spontaneous
  Country: ES (occurrence: ES)
  Receive Date: 20201009
  Receipt Date: 20201009
  Transmission Date: 20210114
  Serious: Yes (Other)
  Sender: FDA-Public Use
  Company Number: ES-MYLANLABS-2020M1084736

PATIENT
  Age: 87 Year
  Sex: Female

DRUGS (8)
  1. LORAZEPAM. [Concomitant]
     Active Substance: LORAZEPAM
     Indication: INSOMNIA
     Dosage: 1 MILLIGRAM, Q8H
     Route: 048
     Dates: start: 20200429
  2. DEXAMETASONA                       /00016001/ [Concomitant]
     Active Substance: DEXAMETHASONE
     Indication: OSTEOARTHRITIS
     Dosage: 4 MILLIGRAM, Q8H
     Route: 048
     Dates: start: 20190418
  3. NOVORAPID [Concomitant]
     Active Substance: INSULIN ASPART
     Indication: TYPE 2 DIABETES MELLITUS
     Dosage: 6 INTERNATIONAL UNIT
     Route: 058
  4. TEGRETOL [Concomitant]
     Active Substance: CARBAMAZEPINE
     Indication: TRIGEMINAL NEURALGIA
     Dosage: 200 MILLIGRAM, Q8H
     Route: 048
     Dates: start: 20190129
  5. FENTANYL. [Suspect]
     Active Substance: FENTANYL
     Indication: PRODUCT USED FOR UNKNOWN INDICATION
     Dosage: 1 DOSAGE FORM, Q3D
     Route: 062
     Dates: start: 20200912
  6. MORFINA                            /00036301/ [Interacting]
     Active Substance: MORPHINE
     Indication: PLASMA CELL MYELOMA
     Dosage: 10 MILLIGRAM, Q4H
     Route: 048
     Dates: start: 20200825, end: 20200915
  7. LANTUS [Concomitant]
     Active Substance: INSULIN GLARGINE
     Indication: TYPE 2 DIABETES MELLITUS
     Dosage: 56 INTERNATIONAL UNIT, QD
     Route: 058
     Dates: start: 20080306
  8. ALOPURINOL [Concomitant]
     Active Substance: ALLOPURINOL
     Indication: PLASMA CELL MYELOMA
     Dosage: 100 MILLIGRAM, QD
     Route: 048
     Dates: start: 20181201

REACTIONS (3)
  - Disorientation [Not Recovered/Not Resolved]
  - Drug interaction [Unknown]
  - Agitation [Not Recovered/Not Resolved]

NARRATIVE: CASE EVENT DATE: 20200914
